FAERS Safety Report 4387734-2 (Version None)
Quarter: 2004Q2

REPORT INFORMATION
  Report Type: 
  Country: None (occurrence: None)
  Receive Date: 20040625
  Receipt Date: 20040512
  Transmission Date: 20050107
  Serious: Yes (Hospitalization)
  Sender: FDA-Public Use
  Company Number: 2004SE02802

PATIENT
  Age: 70 Year
  Sex: Female
  Weight: 50 kg

DRUGS (14)
  1. XYLOCAINE [Suspect]
  2. CRESTOR [Suspect]
     Indication: DYSLIPIDAEMIA
     Dosage: 10 MG DAILY
     Dates: start: 20040210, end: 20040417
  3. CARDIOASPIRINE [Concomitant]
  4. LASIX [Concomitant]
  5. BISOPROLOL [Concomitant]
  6. LANOXIN [Concomitant]
  7. ENALAPRIL MALEATE [Concomitant]
  8. ALLOPURINOL TAB [Concomitant]
  9. ALDACTONE [Concomitant]
  10. PLAVIX [Concomitant]
  11. RENITEC [Concomitant]
  12. LOSEC [Concomitant]
  13. PRAVASIN [Concomitant]
  14. EMCONCOR [Concomitant]

REACTIONS (10)
  - APHASIA [None]
  - BRADYCARDIA [None]
  - DYSPNOEA [None]
  - ELECTROCARDIOGRAM QT PROLONGED [None]
  - ERYTHEMA [None]
  - HYPERTENSION [None]
  - INFARCTION [None]
  - MYOCARDIAL ISCHAEMIA [None]
  - SHOCK [None]
  - THERAPEUTIC AGENT TOXICITY [None]
